FAERS Safety Report 11724603 (Version 1)
Quarter: 2015Q4

REPORT INFORMATION
  Report Type: Spontaneous
  Country: US (occurrence: US)
  Receive Date: 20151111
  Receipt Date: 20151111
  Transmission Date: 20160304
  Serious: No
  Sender: FDA-Public Use
  Company Number: US-UCBSA-2014013745

PATIENT

DRUGS (4)
  1. CLONAZEPAM. [Concomitant]
     Active Substance: CLONAZEPAM
  2. VIMPAT [Suspect]
     Active Substance: LACOSAMIDE
     Indication: EPILEPSY
     Dosage: UNKNOWN DOSE
  3. LAMICTAL [Concomitant]
     Active Substance: LAMOTRIGINE
  4. MELATONIN [Concomitant]
     Active Substance: MELATONIN

REACTIONS (1)
  - Urine odour abnormal [Unknown]
